FAERS Safety Report 21946091 (Version 2)
Quarter: 2024Q1

REPORT INFORMATION
  Report Type: Spontaneous
  Country: US (occurrence: US)
  Receive Date: 20230202
  Receipt Date: 20240305
  Transmission Date: 20240410
  Serious: No
  Sender: FDA-Public Use
  Company Number: US-INCYTE CORPORATION-2022IN003070

PATIENT

DRUGS (2)
  1. OPZELURA [Suspect]
     Active Substance: RUXOLITINIB PHOSPHATE
     Indication: Amyloidosis
     Dosage: USING IT TWICE A DAY BUT ONLY USING ONCE A DAY OR SKIPPING
     Route: 061
  2. OPZELURA [Suspect]
     Active Substance: RUXOLITINIB PHOSPHATE
     Dosage: 1.5 PERCENT
     Route: 065

REACTIONS (2)
  - Off label use [Unknown]
  - Product deposit [Unknown]
